FAERS Safety Report 13524533 (Version 1)
Quarter: 2017Q2

REPORT INFORMATION
  Report Type: Spontaneous
  Country: US (occurrence: US)
  Receive Date: 20170508
  Receipt Date: 20170508
  Transmission Date: 20170830
  Serious: No
  Sender: FDA-Public Use
  Company Number: US-009507513-1704USA008467

PATIENT
  Sex: Female

DRUGS (1)
  1. NEXPLANON [Suspect]
     Active Substance: ETONOGESTREL
     Indication: CONTRACEPTION
     Dosage: 1 ROD, UNK
     Dates: start: 20170417, end: 20170418

REACTIONS (5)
  - Implant site erythema [Not Recovered/Not Resolved]
  - Implant site pruritus [Not Recovered/Not Resolved]
  - Implant site pain [Not Recovered/Not Resolved]
  - Pain in extremity [Not Recovered/Not Resolved]
  - Implant site swelling [Not Recovered/Not Resolved]

NARRATIVE: CASE EVENT DATE: 201704
